FAERS Safety Report 14626624 (Version 1)
Quarter: 2018Q1

REPORT INFORMATION
  Report Type: Spontaneous
  Country: US (occurrence: US)
  Receive Date: 20180310
  Receipt Date: 20180310
  Transmission Date: 20180509
  Serious: No
  Sender: FDA-Public Use
  Company Number: None

PATIENT
  Age: 74 Year
  Sex: Male
  Weight: 105 kg

DRUGS (1)
  1. INFLIXIMAB [Suspect]
     Active Substance: INFLIXIMAB
     Indication: CROHN^S DISEASE
     Route: 042
     Dates: start: 20170602, end: 20170602

REACTIONS (6)
  - Dizziness [None]
  - Hyperhidrosis [None]
  - Nausea [None]
  - Loss of consciousness [None]
  - Infusion related reaction [None]
  - Musculoskeletal stiffness [None]

NARRATIVE: CASE EVENT DATE: 20170817
